FAERS Safety Report 9696403 (Version 3)
Quarter: 2014Q1

REPORT INFORMATION
  Report Type: Spontaneous
  Country: JP (occurrence: JP)
  Receive Date: 20131119
  Receipt Date: 20140210
  Transmission Date: 20141002
  Serious: Yes (Hospitalization, Other)
  Sender: FDA-Public Use
  Company Number: JP-PFIZER INC-2013328738

PATIENT
  Age: 78 Year
  Sex: Female

DRUGS (11)
  1. LYRICA [Suspect]
     Indication: PAIN
     Dosage: 25 MG, 2X/DAY
     Route: 048
     Dates: start: 20130507, end: 20130509
  2. LYRICA [Suspect]
     Dosage: 50 MG, 2X/DAY
     Route: 048
     Dates: start: 20130510, end: 20130520
  3. LYRICA [Suspect]
     Dosage: 125 MG, 1X/DAY
     Route: 048
     Dates: start: 20130521, end: 20130527
  4. URINORM [Concomitant]
     Dosage: 25 MG, 1X/DAY
     Route: 048
  5. MAGNESIUM OXIDE [Concomitant]
     Dosage: UNK
  6. THYRADIN S [Concomitant]
     Dosage: 50 MG, 1X/DAY
     Route: 048
  7. LOBU [Concomitant]
     Indication: PAIN
     Dosage: 60 MG, 3X/DAY
     Route: 048
     Dates: start: 20130507
  8. REBAMIPIDE [Concomitant]
     Indication: PAIN
     Dosage: 100 MG, 3X/DAY
     Route: 048
     Dates: start: 20130507
  9. YODEL [Concomitant]
     Dosage: UNK
     Route: 048
  10. MASHI-NIN-GAN [Concomitant]
     Dosage: UNK
  11. VONAFEC [Concomitant]
     Dosage: UNK
     Route: 054

REACTIONS (4)
  - Blood potassium increased [Recovered/Resolved]
  - Blood creatinine increased [Recovered/Resolved]
  - Glomerular filtration rate decreased [Recovering/Resolving]
  - Blood urea increased [Recovering/Resolving]
